FAERS Safety Report 7367064-7 (Version None)
Quarter: 2011Q1

REPORT INFORMATION
  Report Type: 
  Country: None (occurrence: None)
  Receive Date: 20110322
  Receipt Date: 20100722
  Transmission Date: 20110831
  Serious: Yes (Hospitalization, Other)
  Sender: FDA-Public Use
  Company Number: JP-ASTRAZENECA-2011SE14829

PATIENT
  Age: 718 Month
  Sex: Male

DRUGS (5)
  1. MEROPEN [Suspect]
     Indication: MENINGITIS
     Route: 042
  2. PREDNISOLONE [Suspect]
     Indication: SYSTEMIC LUPUS ERYTHEMATOSUS
     Route: 048
     Dates: end: 20100405
  3. MEROPEN [Suspect]
     Route: 042
     Dates: start: 20100316
  4. MEROPEN [Suspect]
     Route: 042
     Dates: end: 20100418
  5. PREDNISOLONE [Suspect]
     Route: 048
     Dates: start: 20100406

REACTIONS (1)
  - BONE METABOLISM DISORDER [None]
